FAERS Safety Report 12364804 (Version 2)
Quarter: 2016Q2

REPORT INFORMATION
  Report Type: Report from Study
  Country: US (occurrence: US)
  Receive Date: 20160512
  Receipt Date: 20160527
  Transmission Date: 20160815
  Serious: Yes (Other)
  Sender: FDA-Public Use
  Company Number: US-GILEAD-2016-0212364

PATIENT
  Age: 61 Year
  Sex: Female

DRUGS (2)
  1. LEDIPASVIR/SOFOSBUVIR [Suspect]
     Active Substance: LEDIPASVIR\SOFOSBUVIR
     Indication: HEPATITIS C
     Dosage: 1 DF, QD
     Route: 048
     Dates: start: 20160329
  2. VISTARIL [Concomitant]
     Active Substance: HYDROXYZINE PAMOATE

REACTIONS (13)
  - Fall [Unknown]
  - Joint swelling [Unknown]
  - Paranasal sinus hypersecretion [Unknown]
  - Blood pressure abnormal [Unknown]
  - Wheezing [Unknown]
  - Headache [Unknown]
  - Contusion [Unknown]
  - Nausea [Unknown]
  - Increased upper airway secretion [Unknown]
  - Allergic sinusitis [Unknown]
  - Cough [Unknown]
  - Nightmare [Recovered/Resolved]
  - Retching [Unknown]

NARRATIVE: CASE EVENT DATE: 20160503
